FAERS Safety Report 5317439-2 (Version None)
Quarter: 2007Q2

REPORT INFORMATION
  Report Type: 
  Country: None (occurrence: None)
  Receive Date: 20070503
  Receipt Date: 20070503
  Transmission Date: 20071010
  Serious: Yes (Death)
  Sender: FDA-Public Use
  Company Number: None

PATIENT
  Age: 41 Year
  Sex: Male
  Weight: 68.945 kg

DRUGS (97)
  1. ZELNORM [Suspect]
     Indication: IRRITABLE BOWEL SYNDROME
     Dosage: 6 MG BID PO
     Route: 048
     Dates: start: 20070111, end: 20070402
  2. ALBUTEROL NEB [Concomitant]
  3. EPOETIN [Concomitant]
  4. HEPARIN [Concomitant]
  5. AMLODIPINE [Concomitant]
  6. CLONIDINE [Concomitant]
  7. LABETALOL HCL [Concomitant]
  8. NITROGLYCERIN [Concomitant]
  9. CITALOPRAM HYDROBROMIDE [Concomitant]
  10. GABAPENTIN [Concomitant]
  11. OLANZAPINE [Concomitant]
  12. SEVELAMER [Concomitant]
  13. ACETAMINOPHEN [Concomitant]
  14. ALBUTEROL SULFATE NE [Concomitant]
  15. ALUMINIUM HYDROXIDE S [Concomitant]
  16. AMLODIPINE BESYLATE [Concomitant]
  17. ASPIRIN [Concomitant]
  18. BACITRACIN ZINC OINT [Concomitant]
  19. BISACODYL [Concomitant]
  20. CALAMINE LOTION [Concomitant]
  21. CALCIUM ACETATE [Concomitant]
  22. CHLORHEXIDINE GLUCON [Concomitant]
  23. CITALOPRAM HYDROBROM [Concomitant]
  24. CLONIDINE HCL [Concomitant]
  25. DEXTROSE 5%-WATER [Concomitant]
  26. D5 0.9 NS [Concomitant]
  27. DIPHENHYDRAMINE HCL [Concomitant]
  28. DOCUSATE SODIUM [Concomitant]
  29. EPOETIN (EPO10) [Concomitant]
  30. EPOETIN (EPO2) [Concomitant]
  31. EPOETIN (EPO3) [Concomitant]
  32. ERYTHROMYCIN ETHYLSU [Concomitant]
  33. EUCERIN-MINERAL OIL [Concomitant]
  34. FENTANYL [Concomitant]
  35. NEPHROCAP-FOLIC ACID [Concomitant]
  36. GABAPENTIN [Concomitant]
  37. GENTAMICIN [Concomitant]
  38. HALOPERIDOL [Concomitant]
  39. HEPARIN SODIUM [Concomitant]
  40. HYDRALAZINE HCL [Concomitant]
  41. HYDROCORTISONE [Concomitant]
  42. HYDROMORPHONE HCL [Concomitant]
  43. HYDROXYZINE PAMOATE [Concomitant]
  44. HYDROXYZINE HCL [Concomitant]
  45. INSULIN HUMAN LISPRO [Concomitant]
  46. INSULIN HUMAN NPH [Concomitant]
  47. INSULIN HUMAN REGULA [Concomitant]
  48. INSULIN HUMAN GLARGI [Concomitant]
  49. IPRATROPIUM BROMIDE [Concomitant]
  50. LACTULOSE [Concomitant]
  51. LEVOFLOXACIN [Concomitant]
  52. LEVOTHYROXINE SODIUM [Concomitant]
  53. LIDOCAINE 2% VISCOUS [Concomitant]
  54. LORAZEPAM [Concomitant]
  55. MAG HYDROX/AL HYDROX [Concomitant]
  56. MAGNESIUM HYDROXIDE TAB [Concomitant]
  57. MENTHOL/CAMPHOR [Concomitant]
  58. METHYLPHENIDATE HCL [Concomitant]
  59. METOCLOPRAMIDE [Concomitant]
  60. METRONIDAZOLE [Concomitant]
  61. MINOXIDIL [Concomitant]
  62. SRH MIRACLE CREAM [Concomitant]
  63. MORPHINE SULFATE [Concomitant]
  64. VITAMIN CAP [Concomitant]
  65. NIFEDIPINE [Concomitant]
  66. NIFEDIPINE [Concomitant]
  67. NITROGLYCERIN [Concomitant]
  68. NYSTATIN [Concomitant]
  69. OLANZAPINE [Concomitant]
  70. ONDANSETRON [Concomitant]
  71. OXYCODONE HCL/ACETAM [Concomitant]
  72. OXYCODONE HCL [Concomitant]
  73. PANTOPRAZOLE SODIUM [Concomitant]
  74. PARICALCITOL [Concomitant]
  75. POLYETHYLENE GLYCOL [Concomitant]
  76. PREDNISONE TAB [Concomitant]
  77. PREMIXED BAG [Concomitant]
  78. QUETIAPINE FUMARATE [Concomitant]
  79. RANITIDINE HCL [Concomitant]
  80. SENNOSIDES A+B [Concomitant]
  81. SILVER SULFADIAZINE [Concomitant]
  82. SIMETHICONE [Concomitant]
  83. SOD FERRIC GLUC COMP [Concomitant]
  84. SODIUM CHLORIDE [Concomitant]
  85. SODIUM POLYSTY SULFO [Concomitant]
  86. SUCRALFATE [Concomitant]
  87. TEGASEROD HYDROGEN M [Concomitant]
  88. TRAMADOL HCL [Concomitant]
  89. TRAZODONE HCL [Concomitant]
  90. TRIAMCINOLONE ACETON [Concomitant]
  91. VALSARTAN [Concomitant]
  92. VANCOMYCIN HCL [Concomitant]
  93. WARFARIN SODIUM [Concomitant]
  94. ZOLPIDEM TARTRATE TA [Concomitant]
  95. SEVELAMER HCL [Concomitant]
  96. DEXTROSE 50% WATER [Concomitant]
  97. D5 0.45 NS [Concomitant]

REACTIONS (4)
  - CARDIO-RESPIRATORY ARREST [None]
  - HYPERHIDROSIS [None]
  - LOSS OF CONSCIOUSNESS [None]
  - NAUSEA [None]
